FAERS Safety Report 22091006 (Version 1)
Quarter: 2023Q1

REPORT INFORMATION
  Report Type: Spontaneous
  Country: CN (occurrence: CN)
  Receive Date: 20230314
  Receipt Date: 20230314
  Transmission Date: 20230418
  Serious: Yes (Other)
  Sender: FDA-Public Use
  Company Number: ALC2023CN001301

PATIENT
  Age: 29 Year
  Sex: Male
  Weight: 67 kg

DRUGS (3)
  1. FLUORESCEIN SODIUM [Suspect]
     Active Substance: FLUORESCEIN SODIUM
     Indication: Fundoscopy
     Dosage: 0.500 G, QD
     Route: 042
     Dates: start: 20230224, end: 20230224
  2. INDOCYANINE GREEN [Suspect]
     Active Substance: INDOCYANINE GREEN
     Indication: Fundoscopy
     Dosage: 25.000 MG, QD
     Route: 042
     Dates: start: 20230224, end: 20230224
  3. SODIUM CHLORIDE [Concomitant]
     Active Substance: SODIUM CHLORIDE
     Indication: Therapeutic procedure
     Dosage: 10.000 ML, QD
     Route: 042
     Dates: start: 20230224, end: 20230224

REACTIONS (2)
  - Rash [Recovering/Resolving]
  - Pruritus [Recovering/Resolving]

NARRATIVE: CASE EVENT DATE: 20230224
